FAERS Safety Report 10033098 (Version 1)
Quarter: 2014Q1

REPORT INFORMATION
  Report Type: Spontaneous
  Country: BR (occurrence: BR)
  Receive Date: 20140324
  Receipt Date: 20140324
  Transmission Date: 20141002
  Serious: Yes (Other)
  Sender: FDA-Public Use
  Company Number: PHHY2014BR033054

PATIENT
  Age: 76 Year
  Sex: Female

DRUGS (1)
  1. ONBREZ [Suspect]
     Dosage: UNK

REACTIONS (2)
  - Drug dependence [Unknown]
  - General physical health deterioration [Unknown]
